FAERS Safety Report 19028380 (Version 3)
Quarter: 2021Q2

REPORT INFORMATION
  Report Type: Spontaneous
  Country: JP (occurrence: JP)
  Receive Date: 20210319
  Receipt Date: 20210518
  Transmission Date: 20210717
  Serious: Yes (Hospitalization)
  Sender: FDA-Public Use
  Company Number: JP-CELLTRION INC.-2021JP003248

PATIENT

DRUGS (13)
  1. GEBEN [Concomitant]
     Active Substance: SILVER SULFADIAZINE
     Indication: WOUND TREATMENT
     Dosage: UNK
     Dates: start: 20190917
  2. GEMCITABINE. [Concomitant]
     Active Substance: GEMCITABINE
     Indication: BREAST CANCER
     Dosage: UNK, ONCE?WEEKLY FOR 2 WEEKS
     Dates: start: 20200708
  3. OXINORM [Concomitant]
     Indication: CANCER PAIN
     Dosage: UNK
     Dates: start: 20161206
  4. LOXOPROFEN NA [Concomitant]
     Active Substance: LOXOPROFEN SODIUM
     Indication: PAIN
  5. METHAPAIN [Concomitant]
     Active Substance: METHADONE HYDROCHLORIDE
     Indication: CANCER PAIN
     Dosage: UNK
     Dates: start: 20200526
  6. FUROSEMIDE. [Concomitant]
     Active Substance: FUROSEMIDE
     Indication: PRODUCT USED FOR UNKNOWN INDICATION
     Dosage: UNK
     Dates: start: 202101
  7. SPIRONOLACTONE. [Concomitant]
     Active Substance: SPIRONOLACTONE
     Indication: PRODUCT USED FOR UNKNOWN INDICATION
     Dosage: UNK
     Dates: start: 202101
  8. HERCEPTIN [Suspect]
     Active Substance: TRASTUZUMAB
     Indication: BREAST CANCER
     Dosage: 120 MILLIGRAM, QD (EVERY ADMINISTRATION DAY)
     Route: 041
     Dates: start: 20161213, end: 20170509
  9. TRASTUZUMAB BS FOR I.V. INFUSION [NK] [Suspect]
     Active Substance: TRASTUZUMAB
     Dosage: 110 MILLIGRAM, QD
     Route: 042
     Dates: start: 20200708, end: 20201209
  10. TRASTUZUMAB BS FOR I.V. INFUSION [NK] [Suspect]
     Active Substance: TRASTUZUMAB
     Indication: BREAST CANCER
     Dosage: 110 MILLIGRAM, QD (EVERY ADMINISTRATION)
     Route: 041
     Dates: start: 20200708, end: 20210216
  11. HERCEPTIN [Suspect]
     Active Substance: TRASTUZUMAB
     Dosage: UNK, UNK, QD
     Route: 042
  12. GEMCITABINE. [Concomitant]
     Active Substance: GEMCITABINE
     Dosage: UNK
     Dates: start: 20200610, end: 20201209
  13. REBAMIPIDE [Concomitant]
     Active Substance: REBAMIPIDE
     Indication: PAIN

REACTIONS (2)
  - Cardiac failure [Recovering/Resolving]
  - Underdose [Unknown]

NARRATIVE: CASE EVENT DATE: 20210107
